FAERS Safety Report 10348628 (Version 1)
Quarter: 2014Q3

REPORT INFORMATION
  Report Type: Spontaneous
  Country: FR (occurrence: None)
  Receive Date: 20140725
  Receipt Date: 20140725
  Transmission Date: 20150326
  Serious: Yes (Hospitalization)
  Sender: FDA-Public Use
  Company Number: 7307610

PATIENT
  Age: 66 Year
  Sex: Male

DRUGS (14)
  1. LASILIX [Suspect]
     Active Substance: FUROSEMIDE
     Indication: PRODUCT USED FOR UNKNOWN INDICATION
     Route: 048
  2. CELLCEPT [Suspect]
     Active Substance: MYCOPHENOLATE MOFETIL\MYCOPHENOLATE MOFETIL HYDROCHLORIDE
     Indication: PRODUCT USED FOR UNKNOWN INDICATION
     Route: 048
     Dates: start: 20120810
  3. HYPERIUM [Concomitant]
     Active Substance: RILMENIDINE PHOSPHATE
  4. ARANESP [Concomitant]
     Active Substance: DARBEPOETIN ALFA
  5. TRIATEC [Suspect]
     Active Substance: RAMIPRIL
     Indication: PRODUCT USED FOR UNKNOWN INDICATION
     Dosage: DOSE REDUCED
     Route: 048
     Dates: start: 20140131
  6. NEORAL [Concomitant]
     Active Substance: CYCLOSPORINE
  7. PREDNISOLONE (PREDNISOLONE) [Concomitant]
     Active Substance: PREDNISOLONE
  8. SECTRAL [Concomitant]
     Active Substance: ACEBUTOLOL HYDROCHLORIDE
  9. AMLOR (AMLODIPINE BESILATE) [Concomitant]
     Active Substance: AMLODIPINE BESYLATE
  10. AUGMENTIN [Concomitant]
     Active Substance: AMOXICILLIN\CLAVULANATE POTASSIUM
  11. LEVOTHYROX (LEVOTHYROXINE SODIUM) [Suspect]
     Active Substance: LEVOTHYROXINE SODIUM
     Indication: PRODUCT USED FOR UNKNOWN INDICATION
     Route: 048
     Dates: start: 20140401
  12. ESCITALOPRAM [Concomitant]
     Active Substance: ESCITALOPRAM OXALATE
  13. INEXIUM [Concomitant]
     Active Substance: ESOMEPRAZOLE
  14. UVEDOSE (COLECALCIFEROL) [Concomitant]

REACTIONS (3)
  - Renal failure acute [None]
  - Diarrhoea [None]
  - Pancytopenia [None]

NARRATIVE: CASE EVENT DATE: 20140510
